FAERS Safety Report 4784387-6 (Version None)
Quarter: 2005Q3

REPORT INFORMATION
  Report Type: 
  Country: None (occurrence: None)
  Receive Date: 20050929
  Receipt Date: 20050929
  Transmission Date: 20060218
  Serious: Yes (Hospitalization)
  Sender: FDA-Public Use
  Company Number: None

PATIENT
  Age: 34 Year
  Sex: Female

DRUGS (1)
  1. OMNIPAQUE 350 [Suspect]
     Indication: COMPUTERISED TOMOGRAM
     Dosage: 350 MG ONE TIME IV
     Route: 042
     Dates: start: 20050926, end: 20050926

REACTIONS (5)
  - DIARRHOEA [None]
  - HYPOTENSION [None]
  - NAUSEA [None]
  - PROCEDURAL COMPLICATION [None]
  - RASH [None]
